FAERS Safety Report 11964329 (Version 1)
Quarter: 2016Q1

REPORT INFORMATION
  Report Type: Spontaneous
  Country: US (occurrence: None)
  Receive Date: 20160121
  Receipt Date: 20160121
  Transmission Date: 20160526
  Serious: No
  Sender: FDA-Public Use
  Company Number: None

PATIENT
  Age: 65 Year
  Sex: Female
  Weight: 73.94 kg

DRUGS (3)
  1. LANTAPROST OPTHALMIC SANDOZ [Suspect]
     Active Substance: LATANOPROST
     Indication: OCULAR DISCOMFORT
     Dosage: 0.00% 2.5 ML  ONCE AT BEDTIME IN EYES
     Dates: start: 20160106, end: 20160118
  2. CENTRUM VITAMINS LIQUID [Concomitant]
     Active Substance: VITAMINS
  3. HRT [Concomitant]
     Active Substance: UNSPECIFIED INGREDIENT

REACTIONS (3)
  - Paraesthesia [None]
  - Intranasal paraesthesia [None]
  - Paraesthesia oral [None]

NARRATIVE: CASE EVENT DATE: 20160116
